FAERS Safety Report 10238404 (Version 1)
Quarter: 2014Q2

REPORT INFORMATION
  Report Type: Spontaneous
  Country: US (occurrence: None)
  Receive Date: 20140613
  Receipt Date: 20140613
  Transmission Date: 20141212
  Serious: Yes (Other)
  Sender: FDA-Public Use
  Company Number: None

PATIENT
  Age: 42 Year
  Sex: Female
  Weight: 62.6 kg

DRUGS (5)
  1. LAMICTAL 150MG CADISTA [Suspect]
     Indication: BIPOLAR I DISORDER
     Dosage: ONE PILL, QD, ORAL
     Route: 048
  2. DEPAKOTE (BRAND) [Concomitant]
  3. SUBCUTEX [Concomitant]
  4. ADDERAL [Concomitant]
  5. TOPAMAX [Concomitant]

REACTIONS (3)
  - Depression [None]
  - Product substitution issue [None]
  - Therapeutic response changed [None]
